FAERS Safety Report 14091616 (Version 2)
Quarter: 2017Q4

REPORT INFORMATION
  Report Type: Spontaneous
  Country: CH (occurrence: CH)
  Receive Date: 20171016
  Receipt Date: 20171201
  Transmission Date: 20180321
  Serious: Yes (Death)
  Sender: FDA-Public Use
  Company Number: CH-ROCHE-2006235

PATIENT
  Sex: Female

DRUGS (1)
  1. TECENTRIQ [Suspect]
     Active Substance: ATEZOLIZUMAB
     Indication: BLADDER CANCER
     Route: 042
     Dates: start: 20161207

REACTIONS (6)
  - Intestinal perforation [Fatal]
  - Drug ineffective [Unknown]
  - Autoimmune hepatitis [Fatal]
  - Bladder cancer [Fatal]
  - Septic shock [Fatal]
  - Intestinal obstruction [Fatal]
